FAERS Safety Report 19974520 (Version 1)
Quarter: 2021Q4

REPORT INFORMATION
  Report Type: Spontaneous
  Country: JP (occurrence: JP)
  Receive Date: 20211020
  Receipt Date: 20211020
  Transmission Date: 20220303
  Serious: Yes (Other)
  Sender: FDA-Public Use
  Company Number: JP-PFIZER INC-202101336823

PATIENT
  Age: 70 Year
  Sex: Female
  Weight: 43.8 kg

DRUGS (5)
  1. METRONIDAZOLE [Suspect]
     Active Substance: METRONIDAZOLE
     Indication: Pelvic abscess
     Dosage: 500 MG, 3X/DAY
     Route: 041
     Dates: start: 20210722, end: 20210729
  2. RIFAMPIN [Suspect]
     Active Substance: RIFAMPIN
     Indication: Pelvic abscess
     Dosage: UNK
     Dates: start: 20210722, end: 20210725
  3. CEFTRIAXONE [Concomitant]
     Active Substance: CEFTRIAXONE
     Indication: Pelvic abscess
     Dosage: UNK
     Dates: start: 20210722
  4. ATORVASTATIN [Concomitant]
     Active Substance: ATORVASTATIN
  5. AMLODIPINE [Concomitant]
     Active Substance: AMLODIPINE BESYLATE

REACTIONS (3)
  - Nausea [Recovering/Resolving]
  - Vomiting [Recovering/Resolving]
  - Decreased appetite [Recovering/Resolving]

NARRATIVE: CASE EVENT DATE: 20210723
